FAERS Safety Report 18454770 (Version 6)
Quarter: 2024Q3

REPORT INFORMATION
  Report Type: Report from Study
  Country: CO (occurrence: CO)
  Receive Date: 20201102
  Receipt Date: 20240913
  Transmission Date: 20241017
  Serious: Yes (Other)
  Sender: TAKEDA
  Company Number: CO-TAKEDA-2020TUS046134

PATIENT
  Age: 50 Year
  Sex: Male
  Weight: 60 kg

DRUGS (3)
  1. VEDOLIZUMAB [Suspect]
     Active Substance: VEDOLIZUMAB
     Indication: Colitis ulcerative
     Dosage: 300 MILLIGRAM
     Route: 042
     Dates: start: 20171101
  2. VEDOLIZUMAB [Suspect]
     Active Substance: VEDOLIZUMAB
     Dosage: 300 MILLIGRAM, Q4WEEKS
     Route: 042
  3. CALCIUM CARBONATE [Suspect]
     Active Substance: CALCIUM CARBONATE
     Indication: Product used for unknown indication
     Dosage: 600 MILLIGRAM
     Route: 048

REACTIONS (3)
  - Tuberculosis [Not Recovered/Not Resolved]
  - Abdominal pain upper [Recovered/Resolved]
  - Loss of therapeutic response [Unknown]

NARRATIVE: CASE EVENT DATE: 20220613
